FAERS Safety Report 26078667 (Version 1)
Quarter: 2025Q4

REPORT INFORMATION
  Report Type: Spontaneous
  Country: US (occurrence: US)
  Receive Date: 20251123
  Receipt Date: 20251123
  Transmission Date: 20260117
  Serious: No
  Sender: GALPHARM INTERNATIONAL
  Company Number: US-PERRIGO-24US011072

PATIENT
  Age: 39 Year
  Sex: Female

DRUGS (1)
  1. OPILL [Suspect]
     Active Substance: NORGESTREL
     Indication: Contraception
     Dosage: UNKNOWN, UNKNOWN
     Route: 048
     Dates: start: 202408

REACTIONS (4)
  - Polymenorrhoea [Unknown]
  - Heavy menstrual bleeding [Recovered/Resolved]
  - Intermenstrual bleeding [Unknown]
  - Product dose omission issue [Unknown]

NARRATIVE: CASE EVENT DATE: 20240101
